FAERS Safety Report 21584642 (Version 1)
Quarter: 2022Q4

REPORT INFORMATION
  Report Type: Report from Study
  Country: CA (occurrence: CA)
  Receive Date: 20221111
  Receipt Date: 20221111
  Transmission Date: 20230112
  Serious: Yes (Other)
  Sender: FDA-Public Use
  Company Number: CA-PFIZER INC-202201282641

PATIENT
  Age: 20 Year
  Sex: Male

DRUGS (6)
  1. ADALIMUMAB [Suspect]
     Active Substance: ADALIMUMAB
     Dosage: UNK
     Route: 058
  2. ACETAMINOPHEN [Concomitant]
     Active Substance: ACETAMINOPHEN
     Dosage: 1 DF, 2X/DAY
     Route: 048
  3. CIMZIA [Concomitant]
     Active Substance: CERTOLIZUMAB PEGOL
     Dosage: 1 DF
     Route: 058
  4. IBUPROFEN [Concomitant]
     Active Substance: IBUPROFEN
     Dosage: 1 DF, 3X/DAY
     Route: 065
  5. METHOTREXATE [Concomitant]
     Active Substance: METHOTREXATE
     Dosage: UNK, WEEKLY
     Route: 048
  6. NAPROXEN [Concomitant]
     Active Substance: NAPROXEN
     Dosage: 1 DF, 3X/DAY
     Route: 065

REACTIONS (3)
  - C-reactive protein increased [Unknown]
  - Inflammation [Unknown]
  - Musculoskeletal stiffness [Unknown]
